FAERS Safety Report 16178974 (Version 1)
Quarter: 2019Q2

REPORT INFORMATION
  Report Type: Spontaneous
  Country: US (occurrence: US)
  Receive Date: 20190307
  Receipt Date: 20190307
  Transmission Date: 20190711
  Serious: Yes (Hospitalization)
  Sender: FDA-Public Use
  Company Number: None

PATIENT
  Age: 64 Year
  Sex: Female

DRUGS (4)
  1. OMEPRAZOLE. [Concomitant]
     Active Substance: OMEPRAZOLE
  2. CILOSTAZOL. [Concomitant]
     Active Substance: CILOSTAZOL
  3. REPATHA [Suspect]
     Active Substance: EVOLOCUMAB
     Indication: HYPERLIPIDAEMIA
     Dosage: 1  PEN  Q  2 WEEKS SUB-Q?
     Route: 058
     Dates: start: 20181120
  4. PRAGUGREL [Concomitant]

REACTIONS (2)
  - Therapy cessation [None]
  - Dehydration [None]

NARRATIVE: CASE EVENT DATE: 201902
